FAERS Safety Report 4963663-8 (Version None)
Quarter: 2006Q1

REPORT INFORMATION
  Report Type: 
  Country: None (occurrence: None)
  Receive Date: 20060201
  Receipt Date: 20051108
  Transmission Date: 20060701
  Serious: No
  Sender: FDA-Public Use
  Company Number: 2005PV004513

PATIENT
  Age: 62 Year
  Sex: Female
  Weight: 117.028 kg

DRUGS (2)
  1. BYETTA [Suspect]
     Indication: DIABETES MELLITUS NON-INSULIN-DEPENDENT
     Dosage: 5 MCG;QAM;SC
     Route: 058
     Dates: start: 20051001
  2. METFORMIN [Concomitant]

REACTIONS (4)
  - BLOOD GLUCOSE DECREASED [None]
  - DECREASED APPETITE [None]
  - GASTROINTESTINAL HYPOMOTILITY [None]
  - WEIGHT DECREASED [None]
